FAERS Safety Report 12864429 (Version 1)
Quarter: 2016Q4

REPORT INFORMATION
  Report Type: Spontaneous
  Country: US (occurrence: US)
  Receive Date: 20161018
  Receipt Date: 20161018
  Transmission Date: 20170207
  Serious: No
  Sender: FDA-Public Use
  Company Number: None

PATIENT
  Age: 76 Year
  Sex: Male

DRUGS (1)
  1. PRALUENT [Suspect]
     Active Substance: ALIROCUMAB
     Indication: HYPERCHOLESTEROLAEMIA
     Dosage: PRALUENT 75MG - 2 PENS - 75 MG EVERY 14 DAYS - SUBCUTANEOUSLY
     Route: 058
     Dates: start: 20160927, end: 20161018

REACTIONS (2)
  - Myalgia [None]
  - Insomnia [None]

NARRATIVE: CASE EVENT DATE: 20160929
